FAERS Safety Report 6057333-5 (Version None)
Quarter: 2009Q1

REPORT INFORMATION
  Report Type: 
  Country: None (occurrence: None)
  Receive Date: 20090129
  Receipt Date: 20081024
  Transmission Date: 20090719
  Serious: No
  Sender: FDA-Public Use
  Company Number: A0753509A

PATIENT
  Sex: Female

DRUGS (3)
  1. WELLBUTRIN [Suspect]
     Route: 048
     Dates: start: 20050101
  2. WELLBUTRIN [Suspect]
     Indication: MIGRAINE
     Dosage: 150MG TWICE PER DAY
     Route: 048
  3. BUPROPION HYDROCHLORIDE [Suspect]
     Indication: MIGRAINE
     Route: 048

REACTIONS (3)
  - DRUG INEFFECTIVE [None]
  - MIGRAINE [None]
  - THERAPEUTIC RESPONSE UNEXPECTED [None]
